FAERS Safety Report 9813602 (Version 5)
Quarter: 2014Q2

REPORT INFORMATION
  Report Type: Report from Study
  Country: JP (occurrence: JP)
  Receive Date: 20140113
  Receipt Date: 20140415
  Transmission Date: 20141212
  Serious: Yes (Hospitalization)
  Sender: FDA-Public Use
  Company Number: JP-ASTRAZENECA-2012SE92439

PATIENT
  Age: 75 Year
  Sex: Male

DRUGS (58)
  1. CRESTOR [Suspect]
     Indication: HYPERCHOLESTEROLAEMIA
     Route: 048
     Dates: start: 20120803
  2. NEXIUM [Suspect]
     Route: 048
     Dates: start: 20131203, end: 20131214
  3. BAYASPIRIN [Suspect]
     Route: 048
     Dates: start: 20131201, end: 20131201
  4. BAYASPIRIN [Suspect]
     Route: 048
     Dates: start: 20131202
  5. GLIMICRON [Suspect]
     Indication: DIABETES MELLITUS
     Route: 048
     Dates: start: 20040206, end: 20131201
  6. GLIMICRON [Suspect]
     Indication: DIABETES MELLITUS
     Route: 048
     Dates: start: 20131205, end: 20131209
  7. BASEN [Suspect]
     Indication: DIABETES MELLITUS
     Route: 048
     Dates: start: 20101217, end: 20131201
  8. BASEN [Suspect]
     Indication: DIABETES MELLITUS
     Route: 048
     Dates: start: 20131205, end: 20131209
  9. ALOSITOL [Suspect]
     Route: 048
     Dates: start: 20081003, end: 20131220
  10. ALOSITOL [Suspect]
     Route: 048
     Dates: start: 20131221, end: 20140310
  11. ALOSITOL [Suspect]
     Route: 048
     Dates: start: 20140314
  12. NESINA [Suspect]
     Indication: DIABETES MELLITUS
     Route: 048
     Dates: start: 20130118, end: 20130321
  13. METHYLDOPA HYDRATE [Suspect]
     Route: 065
  14. SAYMOTIN [Suspect]
     Indication: HYPERTENSION
     Route: 065
  15. PINDOLOL [Suspect]
     Indication: HYPERTENSION
     Route: 065
  16. ALLOZYM [Suspect]
     Route: 065
  17. TANATRIL [Suspect]
     Indication: DIABETES MELLITUS
     Route: 048
     Dates: start: 20131207
  18. REBAMIPIDE [Suspect]
     Route: 048
     Dates: start: 20131227, end: 20140115
  19. REBAMIPIDE [Suspect]
     Route: 065
     Dates: start: 20140116, end: 20140129
  20. REBAMIPIDE [Suspect]
     Route: 048
     Dates: start: 20140130
  21. MAGLAX [Suspect]
     Route: 048
     Dates: start: 20131212, end: 20140129
  22. MAGLAX [Suspect]
     Route: 048
     Dates: start: 20140130, end: 20140202
  23. TRAZENTA [Suspect]
     Indication: DIABETES MELLITUS
     Route: 065
     Dates: start: 20131211, end: 20131226
  24. TRAZENTA [Suspect]
     Indication: DIABETES MELLITUS
     Route: 065
     Dates: start: 20131227
  25. AMARYL [Suspect]
     Indication: DIABETES MELLITUS
     Route: 065
     Dates: start: 20140109
  26. AMLODIN [Concomitant]
     Indication: HYPERTENSION
     Route: 065
     Dates: start: 2002
  27. GASPORT [Concomitant]
     Route: 048
     Dates: start: 201102
  28. LIVOSTIN [Concomitant]
     Route: 047
     Dates: start: 20120214, end: 20131201
  29. BRONUCK [Concomitant]
     Route: 047
     Dates: start: 20120214, end: 20131201
  30. KENACORT-A [Concomitant]
     Route: 014
     Dates: start: 20130308, end: 20130308
  31. HUMULIN R [Concomitant]
     Indication: DIABETES MELLITUS
     Dosage: 2-4 IU DAILY
     Route: 065
     Dates: start: 20131203, end: 20131214
  32. HUMULIN R [Concomitant]
     Indication: DIABETES MELLITUS
     Dosage: 1-3 IU DAILY
     Route: 065
     Dates: start: 20140205, end: 20140209
  33. SEPAMIT [Concomitant]
     Indication: HYPERTENSION
     Route: 065
     Dates: start: 20131201, end: 20131203
  34. GLYCEOL [Concomitant]
     Route: 065
     Dates: start: 20131201, end: 20131201
  35. GLYCEOL [Concomitant]
     Route: 065
     Dates: start: 20131202, end: 20131202
  36. GLYCEOL [Concomitant]
     Route: 065
     Dates: start: 20131203, end: 20131203
  37. RADICUT [Concomitant]
     Route: 041
     Dates: start: 20131201, end: 20131201
  38. RADICUT [Concomitant]
     Route: 041
     Dates: start: 20131202, end: 20131204
  39. ISOTONIC SODIUM CHLORIDE SOLUTION [Concomitant]
     Route: 065
     Dates: start: 20131201, end: 20131201
  40. ACTIT [Concomitant]
     Route: 065
     Dates: start: 20131202, end: 20131203
  41. ACTIT [Concomitant]
     Route: 065
     Dates: start: 20131204, end: 20131204
  42. PURSENNID [Concomitant]
     Route: 048
     Dates: start: 20131206, end: 20131210
  43. PURSENNID [Concomitant]
     Route: 048
     Dates: start: 20131220
  44. LOXONIN [Concomitant]
     Route: 048
     Dates: start: 20131207, end: 20131207
  45. CRAVIT [Concomitant]
     Route: 047
     Dates: start: 20131208
  46. VASOLAN [Concomitant]
     Route: 065
     Dates: start: 20131213, end: 20131213
  47. LAMISIL [Concomitant]
     Dosage: OPTIMAL DOSE
     Route: 062
     Dates: start: 20140106, end: 20140106
  48. PETROLATUM SALICYLATE [Concomitant]
     Dosage: OPTIMAL DOSE
     Route: 062
     Dates: start: 20140106
  49. SULBACILLIN [Concomitant]
     Route: 065
     Dates: start: 20140202, end: 20140202
  50. SULBACILLIN [Concomitant]
     Route: 065
     Dates: start: 20140203, end: 20140203
  51. SOLDEM 3A [Concomitant]
     Route: 065
     Dates: start: 20140202, end: 20140202
  52. SOLDEM 3A [Concomitant]
     Route: 065
     Dates: start: 20140204, end: 20140204
  53. SOLDEM 3A [Concomitant]
     Route: 065
     Dates: start: 20140303, end: 20140305
  54. SOLYUGEN F [Concomitant]
     Route: 065
     Dates: start: 20140203, end: 20140203
  55. SOLYUGEN G [Concomitant]
     Route: 065
     Dates: start: 20140203, end: 20140206
  56. CEFMETAZOLE NA [Concomitant]
     Route: 065
     Dates: start: 20140203, end: 20140206
  57. LACTEC [Concomitant]
     Route: 065
     Dates: start: 20140203, end: 20140203
  58. PENTAGIN [Concomitant]
     Route: 065
     Dates: start: 20140204, end: 20140204

REACTIONS (4)
  - Cerebral infarction [Recovered/Resolved with Sequelae]
  - Appendicitis [Recovered/Resolved]
  - Nasopharyngitis [Recovered/Resolved]
  - Myalgia [Recovered/Resolved]
